FAERS Safety Report 20771778 (Version 1)
Quarter: 2022Q2

REPORT INFORMATION
  Report Type: Spontaneous
  Country: US (occurrence: US)
  Receive Date: 20220430
  Receipt Date: 20220430
  Transmission Date: 20220720
  Serious: No
  Sender: FDA-Public Use
  Company Number: US-drreddys-SPO/USA/22/0149310

PATIENT
  Age: 35 Year
  Sex: Female

DRUGS (1)
  1. ACCUTANE [Suspect]
     Active Substance: ISOTRETINOIN
     Indication: Product used for unknown indication
     Dosage: RMA ISSUE DATE: 14 SEPTEMBER 2021 03:53:18 PM, 15 OCTOBER 2021 10:32:17 AM, 16 NOVEMBER 2021 06:24:5

REACTIONS (1)
  - Arthralgia [Unknown]
